FAERS Safety Report 9660651 (Version 1)
Quarter: 2013Q4

REPORT INFORMATION
  Report Type: Spontaneous
  Country: US (occurrence: US)
  Receive Date: 20131031
  Receipt Date: 20131031
  Transmission Date: 20140711
  Serious: No
  Sender: FDA-Public Use
  Company Number: US-PFIZER INC-2013310084

PATIENT
  Age: 83 Year
  Sex: Female

DRUGS (4)
  1. LIPITOR [Suspect]
     Dosage: 10 MG, UNK
  2. LEVOTHYROXINE SODIUM [Suspect]
     Dosage: .05 UG, UNK
  3. CODEINE [Suspect]
     Dosage: UNK
  4. CEPHALEXIN [Suspect]
     Dosage: 500 MG, UNK

REACTIONS (1)
  - Drug hypersensitivity [Unknown]
